FAERS Safety Report 9113035 (Version 2)
Quarter: 2013Q4

REPORT INFORMATION
  Report Type: Spontaneous
  Country: US (occurrence: US)
  Receive Date: 20130211
  Receipt Date: 20131223
  Transmission Date: 20140711
  Serious: Yes (Hospitalization, Other)
  Sender: FDA-Public Use
  Company Number: US-009507513-1302USA002862

PATIENT
  Sex: Female
  Weight: 52.15 kg

DRUGS (2)
  1. NUVARING [Suspect]
     Indication: CONTRACEPTION
     Dosage: UNK
     Dates: start: 200709, end: 200904
  2. NUVARING [Suspect]
     Dosage: UNK
     Route: 067
     Dates: start: 2006, end: 200803

REACTIONS (19)
  - Atrial septal defect repair [Unknown]
  - Myocardial infarction [Unknown]
  - Cardiac ablation [Unknown]
  - Sleep disorder [Unknown]
  - Bipolar disorder [Unknown]
  - Eye infection [Unknown]
  - Infection [Unknown]
  - Sinus disorder [Unknown]
  - Bronchitis [Unknown]
  - Drug abuse [Unknown]
  - Anxiety [Unknown]
  - Maternal exposure before pregnancy [Unknown]
  - Depression [Unknown]
  - Coital bleeding [Unknown]
  - Cervical dysplasia [Unknown]
  - Pain [Unknown]
  - Abortion spontaneous [Unknown]
  - Pulmonary embolism [Unknown]
  - Convulsion [Unknown]
